FAERS Safety Report 19899747 (Version 1)
Quarter: 2021Q3

REPORT INFORMATION
  Report Type: Spontaneous
  Country: US (occurrence: US)
  Receive Date: 20210930
  Receipt Date: 20210930
  Transmission Date: 20211014
  Serious: Yes (Disabling, Other)
  Sender: FDA-Public Use
  Company Number: None

PATIENT
  Age: 69 Year
  Sex: Female
  Weight: 84.6 kg

DRUGS (17)
  1. D?MANNOSE [Concomitant]
  2. ONDANSETRON ODT [Concomitant]
     Active Substance: ONDANSETRON
  3. ALIGN [Concomitant]
     Active Substance: BIFIDOBACTERIUM LONGUM SUBSP. INFANTIS
  4. WEGOVY [Suspect]
     Active Substance: SEMAGLUTIDE
     Indication: WEIGHT DECREASED
     Dosage: ?          QUANTITY:4 INJECTION(S);OTHER FREQUENCY:1 PER WEEK;OTHER ROUTE:INJECTION INTO ^BELLY SURFACE^?
     Dates: start: 20210927, end: 20210927
  5. MICARDIS/HCT [Concomitant]
  6. DICYCLOMINE [Concomitant]
     Active Substance: DICYCLOMINE HYDROCHLORIDE
  7. ADVAIR 250?50 [Concomitant]
  8. GNC MULTI?VITAMIN [Concomitant]
  9. OMEGA 3 [Concomitant]
     Active Substance: OMEGA-3 FATTY ACIDS
  10. MONTELUKAST [Concomitant]
     Active Substance: MONTELUKAST SODIUM
  11. VITAMIN C [Concomitant]
     Active Substance: ASCORBIC ACID
  12. CETIRIZINE [Concomitant]
     Active Substance: CETIRIZINE HYDROCHLORIDE
  13. ANARA [Concomitant]
  14. CITRACAL [Concomitant]
     Active Substance: CALCIUM CITRATE
  15. PHENAZOPYRIDINE. [Concomitant]
     Active Substance: PHENAZOPYRIDINE
  16. CEPHALEXIN. [Concomitant]
     Active Substance: CEPHALEXIN
  17. NUTRIVEIN MULTI?COLLAGEN PROTEIN [Concomitant]

REACTIONS (10)
  - Malaise [None]
  - Vomiting [None]
  - Heart rate increased [None]
  - Hyperhidrosis [None]
  - Drug titration error [None]
  - Drug titration [None]
  - Hypertension [None]
  - Pyrexia [None]
  - Product prescribing error [None]
  - Incorrect dose administered [None]

NARRATIVE: CASE EVENT DATE: 20210927
